FAERS Safety Report 16796872 (Version 2)
Quarter: 2019Q3

REPORT INFORMATION
  Report Type: Report from Study
  Country: PL (occurrence: PL)
  Receive Date: 20190911
  Receipt Date: 20190920
  Transmission Date: 20191005
  Serious: Yes (Hospitalization)
  Sender: FDA-Public Use
  Company Number: PL-GILEAD-2019-0427811

PATIENT
  Age: 14 Year
  Sex: Female
  Weight: 43.8 kg

DRUGS (1)
  1. SOFOSBUVIR W/VELPATASVIR/VOXILAPREVIR [Suspect]
     Active Substance: SOFOSBUVIR\VELPATASVIR\VOXILAPREVIR
     Indication: HEPATITIS C
     Dosage: 1 DOSAGE FORM, QD
     Route: 048
     Dates: start: 20190614, end: 20190808

REACTIONS (1)
  - Blood pressure systolic increased [Unknown]

NARRATIVE: CASE EVENT DATE: 20190910
